FAERS Safety Report 7822632-0 (Version None)
Quarter: 2011Q4

REPORT INFORMATION
  Report Type: 
  Country: None (occurrence: None)
  Receive Date: 20111018
  Receipt Date: 20111003
  Transmission Date: 20120403
  Serious: Yes (Other)
  Sender: FDA-Public Use
  Company Number: IT-WATSON-2011-16561

PATIENT
  Age: 13 Year
  Sex: Female

DRUGS (9)
  1. ONCOVIN [Suspect]
     Indication: HODGKIN'S DISEASE LYMPHOCYTE PREDOMINANCE TYPE STAGE III
     Dosage: 6 COURSES OF CHEMOTHERAPY
  2. ADRIAMYCIN PFS [Suspect]
     Indication: HODGKIN'S DISEASE
     Dosage: 6 COURSES OF CHEMOTHERAPY
  3. BLEOMYCIN SULFATE [Suspect]
     Indication: HODGKIN'S DISEASE
     Dosage: 6 COURSES OF CHEMOTHERAPY
  4. PREDNISONE [Suspect]
     Indication: HODGKIN'S DISEASE LYMPHOCYTE PREDOMINANCE TYPE STAGE III
     Dosage: 6 COURSES OF CHEMOTHERAPY
  5. VINBLASTINE SULFATE [Suspect]
     Indication: HODGKIN'S DISEASE
  6. DACARBAZINE [Suspect]
     Indication: HODGKIN'S DISEASE
     Dosage: 6 COURSES OF CHEMOTHERAPY
  7. PROCARBAZINE HYDROCHLORIDE [Suspect]
     Indication: HODGKIN'S DISEASE
     Dosage: 6 COURSES OF CHEMOTHERAPY
  8. PREDNISONE [Suspect]
     Indication: CHEMOTHERAPY
  9. MECHLORETHAMINE [Suspect]
     Indication: HODGKIN'S DISEASE LYMPHOCYTE PREDOMINANCE TYPE STAGE III
     Dosage: 6 COURSES OF CHEMOTHERAPY

REACTIONS (7)
  - ABDOMINAL PAIN UPPER [None]
  - OESOPHAGITIS [None]
  - GASTROOESOPHAGEAL REFLUX DISEASE [None]
  - MUCOSAL INFLAMMATION [None]
  - VOMITING [None]
  - OESOPHAGEAL STENOSIS [None]
  - DYSPEPSIA [None]
